FAERS Safety Report 5595557-1 (Version None)
Quarter: 2008Q1

REPORT INFORMATION
  Report Type: 
  Country: None (occurrence: None)
  Receive Date: 20080118
  Receipt Date: 20080107
  Transmission Date: 20080703
  Serious: Yes (Other)
  Sender: FDA-Public Use
  Company Number: US-ELI_LILLY_AND_COMPANY-US200801001015

PATIENT
  Age: 42 Year

DRUGS (1)
  1. FORTEO [Suspect]
     Route: 058

REACTIONS (4)
  - COELIAC DISEASE [None]
  - FEMUR FRACTURE [None]
  - HIP FRACTURE [None]
  - LOWER LIMB FRACTURE [None]
